FAERS Safety Report 4846024-1 (Version None)
Quarter: 2005Q4

REPORT INFORMATION
  Report Type: 
  Country: None (occurrence: None)
  Receive Date: 20051130
  Receipt Date: 20051117
  Transmission Date: 20060501
  Serious: Yes (Hospitalization)
  Sender: FDA-Public Use
  Company Number: 2005-134726-NL

PATIENT
  Age: 30 Year
  Sex: Female

DRUGS (3)
  1. FOLLICLE-STIMULATING HORMONE, HUMAN [Suspect]
     Dosage: DF
     Route: 042
  2. GONADOTROPIN CHORIONIC [Suspect]
     Dosage: DF
     Route: 042
  3. GONADOTROPIN-RELEASING HORMONE AGONIST [Suspect]
     Dosage: DF
     Route: 042

REACTIONS (6)
  - BUDD-CHIARI SYNDROME [None]
  - ESSENTIAL THROMBOCYTHAEMIA [None]
  - FACTOR V LEIDEN MUTATION [None]
  - HEPATIC VEIN THROMBOSIS [None]
  - MYELOFIBROSIS [None]
  - OEDEMA PERIPHERAL [None]
